FAERS Safety Report 20791788 (Version 1)
Quarter: 2022Q2

REPORT INFORMATION
  Report Type: Spontaneous
  Country: US (occurrence: US)
  Receive Date: 20220505
  Receipt Date: 20220505
  Transmission Date: 20220721
  Serious: No
  Sender: FDA-Public Use
  Company Number: US-PFIZER INC-202200184163

PATIENT
  Age: 80 Year
  Sex: Male

DRUGS (2)
  1. EUCRISA [Suspect]
     Active Substance: CRISABOROLE
     Indication: Dermatitis contact
     Dosage: 2X/DAY (APPLY A SMALL AMOUNT TO AFFECTED AREA)
  2. EUCRISA [Suspect]
     Active Substance: CRISABOROLE
     Indication: Eczema

REACTIONS (3)
  - Off label use [Unknown]
  - Rash [Unknown]
  - Erythema [Unknown]
